FAERS Safety Report 11352824 (Version 1)
Quarter: 2015Q3

REPORT INFORMATION
  Report Type: Spontaneous
  Country: US (occurrence: US)
  Receive Date: 20150807
  Receipt Date: 20150807
  Transmission Date: 20151125
  Serious: No
  Sender: FDA-Public Use
  Company Number: US-JNJFOC-20150102890

PATIENT
  Age: 73 Year
  Sex: Female
  Weight: 64.86 kg

DRUGS (3)
  1. OTHER DRUGS (UNSPECIFIED) [Concomitant]
     Active Substance: UNSPECIFIED INGREDIENT
     Route: 065
  2. WOMENS ROGAINE EXTRA STRENGTH [Suspect]
     Active Substance: MINOXIDIL
     Indication: HAIR GROWTH ABNORMAL
     Dosage: DOSAGE - EXACTLY AS THE INSTRUCTIONS SAY 1/2 CAP????INTERVAL - 1 TIME A DAY, AT NIGHT
     Route: 061
     Dates: start: 20141220, end: 20150101
  3. WOMENS ROGAINE EXTRA STRENGTH [Suspect]
     Active Substance: MINOXIDIL
     Route: 061

REACTIONS (1)
  - Application site vesicles [Recovering/Resolving]

NARRATIVE: CASE EVENT DATE: 20150101
